FAERS Safety Report 7782906-9 (Version None)
Quarter: 2011Q3

REPORT INFORMATION
  Report Type: 
  Country: None (occurrence: None)
  Receive Date: 20110928
  Receipt Date: 20110915
  Transmission Date: 20111222
  Serious: Yes (Other)
  Sender: FDA-Public Use
  Company Number: ES-ELI_LILLY_AND_COMPANY-ES201109003973

PATIENT
  Sex: Female
  Weight: 55 kg

DRUGS (7)
  1. CITALOPRAM [Concomitant]
     Indication: DEPRESSION
     Dosage: 1 DF, QD
     Dates: start: 20070101
  2. DORMADOR [Concomitant]
     Indication: PAIN
     Dosage: 1 DF, QD
  3. CALCIUM CARBONATE [Concomitant]
     Indication: MINERAL SUPPLEMENTATION
     Dosage: 2 DF, QD
     Dates: start: 20010101
  4. PANTOPRAZOLE [Concomitant]
     Indication: GASTRIC DISORDER
     Dosage: 1 DF, QD
  5. NOLOTIL [Concomitant]
     Indication: PAIN
     Dosage: 2 DF, QD
     Dates: start: 20010101
  6. SINTROM [Concomitant]
     Indication: THROMBOSIS
     Dosage: 1 DF, QD
     Dates: start: 20090101
  7. FORTEO [Suspect]
     Indication: OSTEOPOROSIS
     Dosage: 20 UG, QD
     Route: 058
     Dates: start: 20110501

REACTIONS (2)
  - UPPER LIMB FRACTURE [None]
  - FALL [None]
